FAERS Safety Report 7504417-8 (Version None)
Quarter: 2011Q2

REPORT INFORMATION
  Report Type: 
  Country: None (occurrence: None)
  Receive Date: 20110525
  Receipt Date: 20110518
  Transmission Date: 20111010
  Serious: Yes (Other)
  Sender: FDA-Public Use
  Company Number: US-CEPHALON-2011002494

PATIENT
  Sex: Female
  Weight: 59 kg

DRUGS (6)
  1. FENTORA [Suspect]
     Indication: FIBROMYALGIA
  2. OXYCODONE HCL [Concomitant]
  3. FENTORA [Suspect]
     Indication: PAIN
     Route: 002
     Dates: start: 20070101, end: 20070101
  4. FENTORA [Suspect]
     Indication: HEADACHE
  5. OXYCONTIN [Concomitant]
  6. DURAGESIC-100 [Concomitant]

REACTIONS (2)
  - DRUG PRESCRIBING ERROR [None]
  - URTICARIA [None]
